FAERS Safety Report 8969945 (Version 1)
Quarter: 2012Q4

REPORT INFORMATION
  Report Type: 
  Country: US (occurrence: US)
  Receive Date: 20121218
  Receipt Date: 20121218
  Transmission Date: 20130627
  Serious: No
  Sender: FDA-Public Use
  Company Number: US-BRISTOL-MYERS SQUIBB COMPANY-16230070

PATIENT
  Age: 50 Year
  Sex: Female
  Weight: 93.87 kg

DRUGS (10)
  1. ABILIFY [Suspect]
     Indication: DEPRESSION
  2. GEMFIBROZIL [Concomitant]
  3. METOPROLOL [Concomitant]
  4. LASIX [Concomitant]
  5. TOPAMAX [Concomitant]
  6. SIMVASTATIN [Concomitant]
  7. EFFEXOR [Concomitant]
  8. LEXAPRO [Concomitant]
  9. DIAZEPAM [Concomitant]
  10. HYDROCODONE [Concomitant]

REACTIONS (1)
  - Weight increased [Not Recovered/Not Resolved]
